FAERS Safety Report 6060154-0 (Version None)
Quarter: 2009Q1

REPORT INFORMATION
  Report Type: 
  Country: None (occurrence: None)
  Receive Date: 20090128
  Receipt Date: 20090116
  Transmission Date: 20090719
  Serious: Yes (Hospitalization)
  Sender: FDA-Public Use
  Company Number: 6048308

PATIENT
  Age: 48 Year
  Sex: Male

DRUGS (5)
  1. BISOPROLOL FUMARATE [Suspect]
     Indication: DRUG USE FOR UNKNOWN INDICATION
     Dosage: 1 DOSAGE FORMS, ORAL, LONG-TERM
     Route: 048
  2. KENZEN (4 MG, TABLET) (CANDESARTAN CILEXETIL) [Suspect]
     Indication: DRUG USE FOR UNKNOWN INDICATION
     Dosage: 0.5 DOSAGE FORMS (0.5 DOSAGE FORMS, 1 IN 1 D), ORAL, LONG-TERM
     Route: 048
  3. ALDACTONE [Suspect]
     Indication: DRUG USE FOR UNKNOWN INDICATION
     Dosage: (0.5 OF 25 MG 3 DAYS PER WEEK), ORAL, LONG-TERM
     Route: 048
  4. PREVISCAN(TABLET) (FLUIDIONE) [Suspect]
     Indication: DRUG USE FOR UNKNOWN INDICATION
     Dosage: 1 DOSAGE FORMS (1 DOSAGE FORMS, 1 IN 1 D), ORAL
     Route: 048
     Dates: start: 20040101
  5. COLIPRANE (TABLET) (PARACETAMOL) [Suspect]
     Indication: DRUG USE FOR UNKNOWN INDICATION
     Dosage: 1 GM (1 GM, 1 D), ORAL
     Route: 048
     Dates: start: 20080923, end: 20080923

REACTIONS (3)
  - HAEMATURIA [None]
  - INTERNATIONAL NORMALISED RATIO INCREASED [None]
  - PROTHROMBIN TIME SHORTENED [None]
